FAERS Safety Report 19092041 (Version 1)
Quarter: 2021Q2

REPORT INFORMATION
  Report Type: Spontaneous
  Country: AU (occurrence: AU)
  Receive Date: 20210405
  Receipt Date: 20210405
  Transmission Date: 20210717
  Serious: Yes (Life-Threatening, Hospitalization, Other)
  Sender: FDA-Public Use
  Company Number: AU-MICRO LABS LIMITED-ML2021-00952

PATIENT
  Age: 80 Year
  Sex: Male

DRUGS (9)
  1. ACETAZOLAMIDE. [Suspect]
     Active Substance: ACETAZOLAMIDE
     Indication: GLAUCOMA
     Route: 048
  2. FENTANYL. [Concomitant]
     Active Substance: FENTANYL
  3. MULTIVITAMINS [Concomitant]
     Active Substance: VITAMINS
  4. KETOROLAC [Concomitant]
     Active Substance: KETOROLAC TROMETHAMINE
     Indication: GLAUCOMA
  5. LATANOPROST EYE DROPS [Concomitant]
     Active Substance: LATANOPROST
     Indication: GLAUCOMA
  6. PREDNEFRIN EYE DROPS [Concomitant]
     Indication: GLAUCOMA
  7. CEPHAZOLIN [Concomitant]
     Active Substance: CEFAZOLIN
  8. CHLORAMPHENICOL EYE DROPS [Concomitant]
     Indication: GLAUCOMA
  9. MIRTAZAPINE. [Concomitant]
     Active Substance: MIRTAZAPINE
     Route: 048

REACTIONS (1)
  - Drug reaction with eosinophilia and systemic symptoms [Recovering/Resolving]
